FAERS Safety Report 6437540 (Version 2)
Quarter: 2014Q3

REPORT INFORMATION
  Report Type: Spontaneous
  Country: US (occurrence: FR)
  Receive Date: 20071008
  Receipt Date: 20140728
  Transmission Date: 20150326
  Serious: Yes (Hospitalization, Other)
  Sender: FDA-Public Use
  Company Number: US-RANBAXY-2007US-10264

PATIENT

DRUGS (5)
  1. BEZAFIBRATE [Concomitant]
     Active Substance: BEZAFIBRATE
     Indication: DYSLIPIDAEMIA
     Dosage: UNK
  2. VERAPAMIL [Suspect]
     Active Substance: VERAPAMIL HYDROCHLORIDE
     Indication: HYPERTENSION
     Dosage: 240 MG, LP, HALF TABLET DAILY
     Route: 048
     Dates: end: 20070704
  3. FLUINDIONE [Concomitant]
     Active Substance: FLUINDIONE
     Indication: EMBOLISM
     Dosage: UNK
  4. VALACICLOVIR [Suspect]
     Active Substance: VALACYCLOVIR HYDROCHLORIDE
     Indication: HERPES ZOSTER
     Dosage: UNK
     Dates: start: 200705, end: 200706
  5. FLUINDIONE [Concomitant]
     Active Substance: FLUINDIONE
     Indication: MESENTERIC VEIN THROMBOSIS

REACTIONS (5)
  - Hypotension [Recovered/Resolved]
  - Shock [Unknown]
  - Cognitive disorder [Unknown]
  - Malaise [Recovered/Resolved]
  - Dementia Alzheimer^s type [Unknown]

NARRATIVE: CASE EVENT DATE: 20070601
